FAERS Safety Report 7720590-0 (Version None)
Quarter: 2011Q3

REPORT INFORMATION
  Report Type: 
  Country: None (occurrence: None)
  Receive Date: 20110825
  Receipt Date: 20110809
  Transmission Date: 20111222
  Serious: Yes (Hospitalization)
  Sender: FDA-Public Use
  Company Number: 15919467

PATIENT
  Age: 77 Year
  Sex: Male

DRUGS (6)
  1. APIXABAN [Suspect]
     Indication: EMBOLISM
     Dosage: 1 DOSAGE FORM  1 DAY ORAL
     Route: 048
     Dates: start: 20110719, end: 20110730
  2. PLACEBO [Suspect]
     Indication: EMBOLISM
     Dates: start: 20110701, end: 20110730
  3. WARFARIN SODIUM [Suspect]
     Indication: EMBOLISM
     Dosage: 1 DOSAGE FORM  1 DAY ORAL
     Route: 048
     Dates: start: 20110712, end: 20110730
  4. AMLONG (AMLODIPINE BESILATE) [Concomitant]
  5. ENOXAPARIN SODIUM [Suspect]
     Indication: EMBOLISM
     Dosage: 1 DOSAGE FORM  1 DAY SC
     Route: 058
     Dates: start: 20110712, end: 20110730
  6. EPTOIN (PHENYTOIN SODIUM) [Concomitant]

REACTIONS (1)
  - BRAIN MASS [None]
